FAERS Safety Report 7989248-7 (Version None)
Quarter: 2011Q4

REPORT INFORMATION
  Report Type: 
  Country: None (occurrence: None)
  Receive Date: 20111216
  Receipt Date: 20111216
  Transmission Date: 20120403
  Serious: Yes (Hospitalization)
  Sender: FDA-Public Use
  Company Number: None

PATIENT
  Age: 78 Year
  Sex: Male
  Weight: 182.346 kg

DRUGS (2)
  1. VIBATIV [Suspect]
     Indication: ERYSIPELOID
     Dosage: TELAVANCIN 1800MG DLY IV ON 11/21/11
     Dates: start: 20111121, end: 20111123
  2. VIBATIV [Suspect]
     Dosage: TELAVVANCIN 100MG

REACTIONS (6)
  - NAUSEA [None]
  - VOMITING [None]
  - CHILLS [None]
  - BLOOD GLUCOSE INCREASED [None]
  - TREMOR [None]
  - INFUSION RELATED REACTION [None]
